FAERS Safety Report 8550912-2 (Version None)
Quarter: 2012Q3

REPORT INFORMATION
  Report Type: 
  Country: None (occurrence: None)
  Receive Date: 20120730
  Receipt Date: 20120720
  Transmission Date: 20120928
  Serious: Yes (Other)
  Sender: FDA-Public Use
  Company Number: US-BAYER-2012-073394

PATIENT
  Age: 27 Year
  Sex: Female
  Weight: 63.764 kg

DRUGS (8)
  1. YASMIN [Suspect]
  2. CLONAZEPAM [Concomitant]
     Dosage: 0.5 MG, UNK
  3. LAMICTAL [Concomitant]
     Dosage: 25 MG, UNK
  4. LORAZEPAM [Concomitant]
     Dosage: 1 MG, UNK
  5. ZOLOFT [Concomitant]
     Dosage: 100 MG, UNK
  6. ABILIFY [Concomitant]
     Dosage: 10 MG, UNK
  7. YAZ [Suspect]
  8. LITHIUM CARBONATE [Concomitant]
     Dosage: 300 MG, UNK

REACTIONS (1)
  - PULMONARY EMBOLISM [None]
